FAERS Safety Report 6023261-4 (Version None)
Quarter: 2008Q4

REPORT INFORMATION
  Report Type: 
  Country: None (occurrence: None)
  Receive Date: 20081222
  Receipt Date: 20081013
  Transmission Date: 20090506
  Serious: No
  Sender: FDA-Public Use
  Company Number: SPV1-2008-02213

PATIENT
  Age: 15 Year
  Sex: Male
  Weight: 56.2 kg

DRUGS (1)
  1. VYVANSE [Suspect]
     Dosage: ORAL ; 60 MG, ORAL
     Route: 048
     Dates: start: 20080101

REACTIONS (5)
  - DECREASED APPETITE [None]
  - HYPERTENSION [None]
  - INSOMNIA [None]
  - OFF LABEL USE [None]
  - TACHYCARDIA [None]
